FAERS Safety Report 14223722 (Version 1)
Quarter: 2017Q4

REPORT INFORMATION
  Report Type: Report from Study
  Country: IT (occurrence: IT)
  Receive Date: 20171125
  Receipt Date: 20171125
  Transmission Date: 20180321
  Serious: Yes (Hospitalization)
  Sender: FDA-Public Use
  Company Number: IT-ACCORD-061318

PATIENT
  Sex: Female

DRUGS (4)
  1. CAPECITABINE ACCORD [Suspect]
     Active Substance: CAPECITABINE
     Indication: NEOPLASM MALIGNANT
  2. BRIVIRAC [Suspect]
     Active Substance: BRIVUDINE
     Indication: HERPES ZOSTER
  3. AMLODIPINE PFIZER ITALIA [Concomitant]
     Indication: HYPERTENSION
  4. ENAPREN [Concomitant]
     Active Substance: ENALAPRIL MALEATE
     Indication: HYPERTENSION

REACTIONS (2)
  - Pancytopenia [None]
  - Labelled drug-food interaction medication error [None]
